FAERS Safety Report 23299519 (Version 2)
Quarter: 2024Q1

REPORT INFORMATION
  Report Type: Spontaneous
  Country: JP (occurrence: JP)
  Receive Date: 20231215
  Receipt Date: 20240103
  Transmission Date: 20240409
  Serious: Yes (Hospitalization)
  Sender: FDA-Public Use
  Company Number: JP-NOVOPROD-1146765

PATIENT
  Age: 67 Year
  Sex: Female
  Weight: 72.1 kg

DRUGS (8)
  1. SOGROYA [Suspect]
     Active Substance: SOMAPACITAN-BECO
     Indication: Hypopituitarism
     Dosage: 1 MG, QW
     Route: 058
     Dates: start: 202308
  2. SOGROYA [Suspect]
     Active Substance: SOMAPACITAN-BECO
     Dosage: 1.25 MG, QW
     Route: 058
     Dates: start: 202310
  3. CORTRIL [Concomitant]
     Active Substance: HYDROCORTISONE
     Indication: Hypopituitarism
     Dosage: 25 MG, QD
  4. LEVOTHYROXINE [Concomitant]
     Active Substance: LEVOTHYROXINE
     Indication: Hypopituitarism
     Dosage: 75.00MCG/DAY
  5. OLMESARTAN [Concomitant]
     Active Substance: OLMESARTAN
     Indication: Hypertension
     Dosage: 20 MG, QD
     Route: 048
  6. BEZAFIBRATE [Concomitant]
     Active Substance: BEZAFIBRATE
     Indication: Dyslipidaemia
     Dosage: 200 MG, QD
     Route: 048
  7. FAMOTIDINE [Concomitant]
     Active Substance: FAMOTIDINE
     Dosage: 40 MG, QD
  8. REBAMIPIDE [Concomitant]
     Active Substance: REBAMIPIDE
     Dosage: UNK

REACTIONS (1)
  - Thrombotic cerebral infarction [Recovering/Resolving]

NARRATIVE: CASE EVENT DATE: 20231101
